FAERS Safety Report 22208906 (Version 2)
Quarter: 2023Q2

REPORT INFORMATION
  Report Type: Report from Study
  Country: NL (occurrence: NL)
  Receive Date: 20230413
  Receipt Date: 20230424
  Transmission Date: 20230721
  Serious: Yes (Hospitalization)
  Sender: FDA-Public Use
  Company Number: NL-TEVA-2023-NL-2875597

PATIENT
  Age: 9 Year
  Sex: Male

DRUGS (4)
  1. METOCLOPRAMIDE [Suspect]
     Active Substance: METOCLOPRAMIDE
     Indication: Nausea
     Dosage: DOSING REGIMEN: A.N
     Route: 048
     Dates: start: 20230301, end: 20230320
  2. ARIPIPRAZOLE [Suspect]
     Active Substance: ARIPIPRAZOLE
     Indication: Autism spectrum disorder
     Dosage: DOSING REGIMEN: 2 MG
     Route: 048
     Dates: start: 20230202, end: 20230320
  3. CRIZOTINIB [Suspect]
     Active Substance: CRIZOTINIB
     Indication: Neoplasm malignant
     Dosage: 440 MG/M2 DAILY; DOSING REGIMEN: 220 MG/M2, 2 TIMES A DAY
     Route: 048
     Dates: start: 20230211, end: 20230320
  4. GRANISETRON HYDROCHLORIDE [Suspect]
     Active Substance: GRANISETRON HYDROCHLORIDE
     Indication: Nausea
     Dosage: DOSING REGIMEN: 1 MG
     Route: 048
     Dates: start: 20230211, end: 20230320

REACTIONS (1)
  - Constipation [Recovered/Resolved]

NARRATIVE: CASE EVENT DATE: 20230317
